FAERS Safety Report 23765681 (Version 1)
Quarter: 2024Q2

REPORT INFORMATION
  Report Type: Spontaneous
  Country: US (occurrence: US)
  Receive Date: 20240421
  Receipt Date: 20240421
  Transmission Date: 20240715
  Serious: No
  Sender: FDA-Public Use
  Company Number: US-GSKCCFUS-Case-01984746_AE-110200

PATIENT
  Sex: Male

DRUGS (1)
  1. NUCALA [Suspect]
     Active Substance: MEPOLIZUMAB
     Indication: Product used for unknown indication
     Dosage: 100 MG, CYC
     Route: 058
     Dates: start: 20240411

REACTIONS (1)
  - Wrong technique in device usage process [Unknown]
